FAERS Safety Report 5436039-7 (Version None)
Quarter: 2007Q3

REPORT INFORMATION
  Report Type: 
  Country: None (occurrence: None)
  Receive Date: 20070831
  Receipt Date: 20070827
  Transmission Date: 20080115
  Serious: Yes (Hospitalization)
  Sender: FDA-Public Use
  Company Number: B0485122A

PATIENT
  Age: 58 Year
  Sex: Female
  Weight: 56 kg

DRUGS (4)
  1. ZOFRAN [Suspect]
  2. IRINOTECAN HCL [Suspect]
     Dosage: 300MG CYCLIC
     Route: 042
     Dates: start: 20070423
  3. 5-FU [Suspect]
     Dosage: 5100MG PER DAY
     Route: 042
     Dates: start: 20070423
  4. CETUXIMAB [Suspect]
     Dosage: 400MG PER DAY
     Route: 042
     Dates: start: 20070423

REACTIONS (1)
  - ILL-DEFINED DISORDER [None]
